FAERS Safety Report 5319899-X (Version None)
Quarter: 2007Q2

REPORT INFORMATION
  Report Type: 
  Country: None (occurrence: None)
  Receive Date: 20070503
  Receipt Date: 20070425
  Transmission Date: 20071010
  Serious: Yes (Hospitalization)
  Sender: FDA-Public Use
  Company Number: 2007-02060

PATIENT
  Age: 5 Year
  Sex: Female
  Weight: 16.8 kg

DRUGS (6)
  1. CLONIDINE [Suspect]
     Indication: AGITATION
     Dosage: 0.1 MG, PRN (3 DOSES PRIOR TO OR), OTHER
     Route: 050
  2. CLONIDINE [Suspect]
     Indication: RESTLESSNESS
     Dosage: 0.1 MG, PRN (3 DOSES PRIOR TO OR), OTHER
     Route: 050
  3. SEVOFLURANE [Suspect]
     Indication: INDUCTION OF ANAESTHESIA
     Dosage: TITRATING TO 8% CONCENTRATION, RESPIRATORY
     Route: 055
     Dates: start: 20060101, end: 20060101
  4. RANITIDINE [Concomitant]
  5. LACTULOSE [Concomitant]
  6. BACLOFEN [Concomitant]

REACTIONS (2)
  - ANAESTHETIC COMPLICATION [None]
  - CARDIAC ARREST [None]
